FAERS Safety Report 7179985-9 (Version None)
Quarter: 2010Q4

REPORT INFORMATION
  Report Type: 
  Country: None (occurrence: None)
  Receive Date: 20101221
  Receipt Date: 20101215
  Transmission Date: 20110411
  Serious: Yes (Hospitalization)
  Sender: FDA-Public Use
  Company Number: FR-MERCK-1012FRA00107

PATIENT
  Sex: Male

DRUGS (13)
  1. ISENTRESS [Suspect]
     Indication: ACQUIRED IMMUNODEFICIENCY SYNDROME
     Route: 048
     Dates: start: 20101201, end: 20101201
  2. ISENTRESS [Suspect]
     Indication: HIV INFECTION
     Route: 048
     Dates: start: 20101201, end: 20101201
  3. ACYCLOVIR [Concomitant]
     Indication: CEREBRAL TOXOPLASMOSIS
     Route: 065
     Dates: start: 20101201, end: 20101201
  4. SULFADIAZINE [Suspect]
     Indication: CEREBRAL TOXOPLASMOSIS
     Route: 065
     Dates: start: 20101201, end: 20101201
  5. PYRIMETHAMINE [Concomitant]
     Indication: CEREBRAL TOXOPLASMOSIS
     Route: 065
     Dates: start: 20101201, end: 20101201
  6. ABACAVIR SULFATE AND LAMIVUDINE [Concomitant]
     Indication: ACQUIRED IMMUNODEFICIENCY SYNDROME
     Route: 065
     Dates: start: 20101201, end: 20101201
  7. ABACAVIR SULFATE AND LAMIVUDINE [Concomitant]
     Indication: HIV INFECTION
     Route: 065
     Dates: start: 20101201, end: 20101201
  8. DARUNAVIR [Concomitant]
     Indication: HIV INFECTION
     Route: 065
     Dates: start: 20101201, end: 20101201
  9. DARUNAVIR [Concomitant]
     Indication: ACQUIRED IMMUNODEFICIENCY SYNDROME
     Route: 065
     Dates: start: 20101201, end: 20101201
  10. ENFUVIRTIDE [Concomitant]
     Indication: HIV INFECTION
     Route: 065
     Dates: start: 20101201, end: 20101201
  11. ENFUVIRTIDE [Concomitant]
     Indication: ACQUIRED IMMUNODEFICIENCY SYNDROME
     Route: 065
     Dates: start: 20101201, end: 20101201
  12. RITONAVIR [Concomitant]
     Indication: HIV INFECTION
     Route: 065
     Dates: start: 20101201, end: 20101201
  13. RITONAVIR [Concomitant]
     Indication: ACQUIRED IMMUNODEFICIENCY SYNDROME
     Route: 065
     Dates: start: 20101201, end: 20101201

REACTIONS (3)
  - GENERAL PHYSICAL HEALTH DETERIORATION [None]
  - RHABDOMYOLYSIS [None]
  - TOXIC SKIN ERUPTION [None]
